FAERS Safety Report 10153472 (Version 2)
Quarter: 2014Q2

REPORT INFORMATION
  Report Type: Spontaneous
  Country: US (occurrence: US)
  Receive Date: 20140505
  Receipt Date: 20140508
  Transmission Date: 20141212
  Serious: No
  Sender: FDA-Public Use
  Company Number: US-SHIRE-US201401757

PATIENT
  Sex: Female
  Weight: 52.15 kg

DRUGS (7)
  1. VYVANSE [Suspect]
     Indication: ATTENTION DEFICIT/HYPERACTIVITY DISORDER
     Dosage: 50 MG, 1X/DAY:QD
     Route: 048
  2. VYVANSE [Suspect]
     Dosage: 40 MG, 1X/DAY:QD
     Route: 048
     Dates: start: 201411
  3. VYVANSE [Suspect]
     Dosage: 60 MG, 1X/DAY:QD
     Route: 048
  4. VYVANSE [Suspect]
     Dosage: 70 MG, 1X/DAY:QD
     Route: 048
     Dates: end: 2014
  5. VYVANSE [Suspect]
     Dosage: UNK UNK (SOME OF A 70 MG CAPSULE), UNKNOWN
     Route: 048
     Dates: start: 2014, end: 201402
  6. VYVANSE [Suspect]
     Dosage: 50 MG, 1X/DAY:QD
     Route: 048
     Dates: start: 201402
  7. TRI-SPRINTEC [Concomitant]
     Indication: CONTRACEPTION
     Dosage: 1 DF (ONE PILL) , 1X/DAY:QD
     Route: 048
     Dates: start: 2010

REACTIONS (4)
  - Therapeutic response changed [Not Recovered/Not Resolved]
  - Drug ineffective [Unknown]
  - Drug prescribing error [Recovered/Resolved]
  - Product quality issue [Unknown]
